FAERS Safety Report 9771327 (Version 2)
Quarter: 2014Q1

REPORT INFORMATION
  Report Type: Spontaneous
  Country: US (occurrence: US)
  Receive Date: 20131218
  Receipt Date: 20140218
  Transmission Date: 20141002
  Serious: Yes (Other)
  Sender: FDA-Public Use
  Company Number: US-AMGEN-USASP2013088808

PATIENT
  Age: 88 Year
  Sex: Male
  Weight: 66.67 kg

DRUGS (5)
  1. PROCRIT [Suspect]
     Indication: PRODUCT USED FOR UNKNOWN INDICATION
     Dosage: UNK
     Route: 058
  2. BABY ASPIRIN [Concomitant]
     Dosage: UNK
     Route: 048
  3. CARDURA [Concomitant]
     Dosage: UNK
  4. METOPROLOL [Concomitant]
     Dosage: UNK
  5. VICODIN [Concomitant]
     Indication: PAIN
     Dosage: UNK UNK, AS NEEDED

REACTIONS (2)
  - Transfusion [Unknown]
  - Pruritus [Not Recovered/Not Resolved]
